FAERS Safety Report 8446891-9 (Version None)
Quarter: 2012Q2

REPORT INFORMATION
  Report Type: 
  Country: None (occurrence: None)
  Receive Date: 20120612
  Receipt Date: 20120612
  Transmission Date: 20120825
  Serious: Yes (Hospitalization)
  Sender: FDA-Public Use
  Company Number: None

PATIENT
  Sex: Male
  Weight: 14.6 kg

DRUGS (5)
  1. VINCRISTINE [Suspect]
     Dosage: TOTAL DOSE ADMINISTERED  2.76 MG
  2. DEXAMETHASONE [Suspect]
     Dosage: TOTAL DOSE ADMINISTERED 80 MG
  3. PEG-L-ASPARAGINASE (PEGASPARGASE, ONCOSPAR) [Suspect]
     Dosage: TOTAL DOSE ADMINISTERED 1550 UNIT
  4. CYTARABINE [Suspect]
     Dosage: TOTAL DOSE ADMINISTERED 70 MG
  5. METHOTREXATE [Suspect]
     Dosage: TOTAL DOSE ADMINISTERED 12 MG

REACTIONS (7)
  - ASTHENIA [None]
  - ABDOMINAL TENDERNESS [None]
  - PYREXIA [None]
  - VOMITING [None]
  - DEHYDRATION [None]
  - LARGE INTESTINE PERFORATION [None]
  - PANCYTOPENIA [None]
